FAERS Safety Report 5890282-1 (Version None)
Quarter: 2008Q3

REPORT INFORMATION
  Report Type: 
  Country: None (occurrence: None)
  Receive Date: 20080918
  Receipt Date: 20080908
  Transmission Date: 20090109
  Serious: Yes (Hospitalization)
  Sender: FDA-Public Use
  Company Number: 08H-163-0314891-00

PATIENT
  Sex: Male

DRUGS (1)
  1. BUPIVACAINE HCL [Suspect]
     Indication: SPINAL ANAESTHESIA
     Dosage: 1.33CC-1. 4CC, ONCE, SPINAL
     Dates: start: 20080811, end: 20080811

REACTIONS (5)
  - MOVEMENT DISORDER [None]
  - MUSCULAR WEAKNESS [None]
  - MYELOPATHY [None]
  - PARALYSIS FLACCID [None]
  - URINARY RETENTION [None]
